FAERS Safety Report 6437869-5 (Version None)
Quarter: 2009Q4

REPORT INFORMATION
  Report Type: 
  Country: None (occurrence: None)
  Receive Date: 20091112
  Receipt Date: 20091105
  Transmission Date: 20100525
  Serious: Yes (Death, Hospitalization, Disabling)
  Sender: FDA-Public Use
  Company Number: MX-ROCHE-648626

PATIENT
  Sex: Female
  Weight: 83 kg

DRUGS (7)
  1. CAPECITABINE [Suspect]
     Indication: BREAST CANCER
     Dosage: FREQUENCY REPORTED AS 14 DAYS.
     Route: 048
     Dates: start: 20090621
  2. CAPECITABINE [Suspect]
     Dosage: FREQUENCU: DAILY FOR 14 DAYS, DOSE FORM 3-0-2, LAST DOSE PRIOR TO SAE 26 JUL 2009
     Route: 048
     Dates: start: 20090713
  3. CAPECITABINE [Suspect]
     Dosage: FREQUENCY: DAILY FOR 14 DAYS, DOSE REDUCED
     Route: 048
     Dates: start: 20090729
  4. FLUCONAZOLE [Suspect]
     Indication: DRUG USE FOR UNKNOWN INDICATION
     Route: 065
     Dates: start: 20090803, end: 20090812
  5. CAPTOPRIL [Concomitant]
     Dates: start: 19990101
  6. FILGRASTIM [Concomitant]
     Dates: start: 20090403, end: 20090407
  7. IMIPENEM [Concomitant]
     Dates: start: 20090403, end: 20090809

REACTIONS (8)
  - DEHYDRATION [None]
  - DIARRHOEA [None]
  - FEBRILE NEUTROPENIA [None]
  - GASTRIC ULCER [None]
  - HYPERBILIRUBINAEMIA [None]
  - PALMAR-PLANTAR ERYTHRODYSAESTHESIA SYNDROME [None]
  - PNEUMONIA [None]
  - RENAL FAILURE ACUTE [None]
